FAERS Safety Report 6209493-0 (Version None)
Quarter: 2009Q2

REPORT INFORMATION
  Report Type: 
  Country: None (occurrence: None)
  Receive Date: 20090601
  Receipt Date: 20090429
  Transmission Date: 20091009
  Serious: No
  Sender: FDA-Public Use
  Company Number: US-BAYER-200912979NA

PATIENT
  Age: 52 Year
  Sex: Female

DRUGS (4)
  1. BETASERON [Suspect]
     Indication: MULTIPLE SCLEROSIS
     Dosage: TOTAL DAILY DOSE: 8 MIU
     Route: 058
     Dates: start: 20090101
  2. TYLENOL (CAPLET) [Concomitant]
  3. TOPAMAX [Concomitant]
  4. ADVIL [Concomitant]

REACTIONS (3)
  - EYE SWELLING [None]
  - SWELLING [None]
  - SWELLING FACE [None]
